FAERS Safety Report 9055257 (Version 2)
Quarter: 2013Q1

REPORT INFORMATION
  Report Type: Spontaneous
  Country: US (occurrence: US)
  Receive Date: 20130206
  Receipt Date: 20130219
  Transmission Date: 20140127
  Serious: Yes (Other)
  Sender: FDA-Public Use
  Company Number: US-PFIZER INC-2013040885

PATIENT
  Age: 50 Year
  Sex: Male
  Weight: 77 kg

DRUGS (3)
  1. XALATAN [Suspect]
     Indication: GLAUCOMA
     Dosage: 1 DROP BOTH EYES AT NIGHT
     Route: 047
     Dates: start: 20130109
  2. VERAPAMIL [Concomitant]
     Indication: HYPERTENSION
     Dosage: UNK
  3. ZETIA [Concomitant]
     Indication: BLOOD CHOLESTEROL INCREASED
     Dosage: UNK

REACTIONS (4)
  - Oedema mouth [Not Recovered/Not Resolved]
  - Intraocular pressure increased [Unknown]
  - Eye irritation [Not Recovered/Not Resolved]
  - Ocular hyperaemia [Not Recovered/Not Resolved]
